FAERS Safety Report 16117452 (Version 1)
Quarter: 2019Q1

REPORT INFORMATION
  Report Type: Spontaneous
  Country: US (occurrence: US)
  Receive Date: 20190221
  Receipt Date: 20190221
  Transmission Date: 20190418
  Serious: Yes (Hospitalization)
  Sender: FDA-Public Use
  Company Number: None

PATIENT
  Age: 49 Year
  Sex: Female

DRUGS (16)
  1. OCALIVA [Suspect]
     Active Substance: OBETICHOLIC ACID
     Indication: BILIARY CIRRHOSIS
     Route: 048
     Dates: start: 20181226
  2. CHOLESTYRAM [Concomitant]
     Active Substance: CHOLESTYRAMINE
  3. DOXEPIN HCL [Concomitant]
     Active Substance: DOXEPIN HYDROCHLORIDE
  4. GABAPENTIN. [Concomitant]
     Active Substance: GABAPENTIN
  5. UROSODIOL [Concomitant]
  6. ACETAMIN [Concomitant]
     Active Substance: ACETAMINOPHEN
  7. BISACODYL. [Concomitant]
     Active Substance: BISACODYL
  8. FLUTICASONE. [Concomitant]
     Active Substance: FLUTICASONE
  9. HYDROXYZ HCL [Concomitant]
     Active Substance: HYDROXYZINE HYDROCHLORIDE
  10. TRAZODONE [Concomitant]
     Active Substance: TRAZODONE HYDROCHLORIDE
  11. AMLODIPINE [Concomitant]
     Active Substance: AMLODIPINE BESYLATE
  12. RIFAMPIN. [Concomitant]
     Active Substance: RIFAMPIN
  13. SENNA [Concomitant]
     Active Substance: SENNA LEAF\SENNOSIDES\SENNOSIDES A AND B
  14. FEROSUL [Concomitant]
  15. FERROUS SULF [Concomitant]
     Active Substance: FERROUS SULFATE
  16. PANTOPRAZOLE [Concomitant]
     Active Substance: PANTOPRAZOLE

REACTIONS (2)
  - Hysterectomy [None]
  - Suture rupture [None]

NARRATIVE: CASE EVENT DATE: 20190206
